FAERS Safety Report 14226624 (Version 1)
Quarter: 2017Q4

REPORT INFORMATION
  Report Type: Spontaneous
  Country: DE (occurrence: DE)
  Receive Date: 20171127
  Receipt Date: 20171127
  Transmission Date: 20180321
  Serious: Yes (Life-Threatening, Hospitalization, Other)
  Sender: FDA-Public Use
  Company Number: DE-BIOVITRUM-2014DE0226

PATIENT
  Age: 10 Month
  Sex: Female
  Weight: 10.5 kg

DRUGS (13)
  1. VITAMIN D [Concomitant]
     Active Substance: CHOLECALCIFEROL
     Indication: PROPHYLAXIS
     Route: 048
     Dates: start: 20131029
  2. MICONAZOL GEL [Concomitant]
     Indication: PROPHYLAXIS
     Route: 048
     Dates: start: 20140211
  3. KINERET [Suspect]
     Active Substance: ANAKINRA
     Indication: STILL^S DISEASE
     Dates: start: 20131003, end: 20131029
  4. PREDNISON [Concomitant]
     Active Substance: PREDNISONE
     Route: 048
     Dates: start: 20140211
  5. OMEPRAZOL [Concomitant]
     Active Substance: OMEPRAZOLE
     Indication: PROPHYLAXIS
     Dates: start: 20140101
  6. OMEPRAZOL [Concomitant]
     Active Substance: OMEPRAZOLE
     Indication: PROPHYLAXIS
     Route: 048
     Dates: start: 20140211
  7. FERRO SANOL [Concomitant]
     Active Substance: FERROUS GLYCINE SULFATE
     Indication: IRON DEFICIENCY
     Dosage: 30 DROPS
     Dates: start: 20140101
  8. PREDNISON [Concomitant]
     Active Substance: PREDNISONE
     Indication: MUCKLE-WELLS SYNDROME
     Dates: start: 20140105
  9. INDOMETACIN [Concomitant]
     Active Substance: INDOMETHACIN
     Indication: MUCKLE-WELLS SYNDROME
     Dates: start: 20140101
  10. KINERET [Suspect]
     Active Substance: ANAKINRA
     Dates: start: 20131101, end: 20140513
  11. CICLOSPORIN A [Concomitant]
     Active Substance: CYCLOSPORINE
     Indication: MUCKLE-WELLS SYNDROME
     Dates: start: 20140101
  12. CICLOSPORIN A [Concomitant]
     Active Substance: CYCLOSPORINE
     Dates: start: 20140415
  13. TRIMETHOPRIM. [Concomitant]
     Active Substance: TRIMETHOPRIM
     Indication: PROPHYLAXIS
     Route: 048
     Dates: start: 20130501

REACTIONS (12)
  - Disseminated intravascular coagulation [Unknown]
  - Pneumonia [Unknown]
  - Respiratory failure [Unknown]
  - Viral infection [Unknown]
  - Hepatosplenomegaly [Recovered/Resolved with Sequelae]
  - Histiocytosis haematophagic [Recovering/Resolving]
  - Pleural effusion [Unknown]
  - Lymphadenopathy [Recovered/Resolved with Sequelae]
  - Pyrexia [Recovered/Resolved with Sequelae]
  - Gastrointestinal infection [Unknown]
  - Cardiovascular insufficiency [Unknown]
  - Viral diarrhoea [Unknown]

NARRATIVE: CASE EVENT DATE: 201310
